FAERS Safety Report 25747896 (Version 1)
Quarter: 2025Q3

REPORT INFORMATION
  Report Type: Report from Study
  Country: JP (occurrence: JP)
  Receive Date: 20250901
  Receipt Date: 20250901
  Transmission Date: 20251020
  Serious: Yes (Hospitalization, Other)
  Sender: TAKEDA
  Company Number: JP-TAKEDA-2025TJP008883

PATIENT
  Sex: Male
  Weight: 66.1 kg

DRUGS (42)
  1. MARIBAVIR [Suspect]
     Active Substance: MARIBAVIR
     Indication: Cytomegalovirus infection
     Dates: start: 20241017, end: 20241030
  2. MARIBAVIR [Suspect]
     Active Substance: MARIBAVIR
     Dates: start: 20241211, end: 20250107
  3. MARIBAVIR [Suspect]
     Active Substance: MARIBAVIR
     Dates: start: 20250204, end: 20250305
  4. REVLIMID [Suspect]
     Active Substance: LENALIDOMIDE
     Indication: Adult T-cell lymphoma/leukaemia recurrent
  5. LETERMOVIR [Concomitant]
     Active Substance: LETERMOVIR
     Indication: Cytomegalovirus infection
     Dates: start: 20241031, end: 20241210
  6. TACROLIMUS [Concomitant]
     Active Substance: TACROLIMUS
  7. SPIRONOLACTONE [Concomitant]
     Active Substance: SPIRONOLACTONE
  8. FUROSEMIDE [Concomitant]
     Active Substance: FUROSEMIDE
  9. TORSEMIDE [Concomitant]
     Active Substance: TORSEMIDE
  10. SAMSCA [Concomitant]
     Active Substance: TOLVAPTAN
  11. INDAPAMIDE [Concomitant]
     Active Substance: INDAPAMIDE
  12. ENTRESTO [Concomitant]
     Active Substance: SACUBITRIL\VALSARTAN
  13. AMLODIPINE [Concomitant]
     Active Substance: AMLODIPINE BESYLATE
  14. POTASSIUM ASPARTATE [Concomitant]
     Active Substance: POTASSIUM ASPARTATE
  15. MIYA-BM [Concomitant]
     Active Substance: CLOSTRIDIUM BUTYRICUM SPORES STRAIN M-55
  16. VONOPRAZAN FUMARATE [Concomitant]
     Active Substance: VONOPRAZAN FUMARATE
  17. BROTIZOLAM [Concomitant]
     Active Substance: BROTIZOLAM
  18. HUMALOG [Concomitant]
     Active Substance: INSULIN LISPRO
  19. INSULIN GLARGINE [Concomitant]
     Active Substance: INSULIN GLARGINE
  20. LINAGLIPTIN [Concomitant]
     Active Substance: LINAGLIPTIN
  21. REZUROCK [Concomitant]
     Active Substance: BELUMOSUDIL
  22. IMBRUVICA [Concomitant]
     Active Substance: IBRUTINIB
  23. VALEMETOSTAT TOSYLATE [Concomitant]
     Active Substance: VALEMETOSTAT TOSYLATE
  24. AUGMENTIN [Concomitant]
     Active Substance: AMOXICILLIN\CLAVULANATE POTASSIUM
  25. CRESEMBA [Concomitant]
     Active Substance: ISAVUCONAZONIUM SULFATE
  26. LEVOFLOXACIN HEMIHYDRATE [Concomitant]
     Active Substance: LEVOFLOXACIN
  27. ACYCLOVIR [Concomitant]
     Active Substance: ACYCLOVIR
  28. PENTAMIDINE [Concomitant]
     Active Substance: PENTAMIDINE
  29. TAVALISSE [Concomitant]
     Active Substance: FOSTAMATINIB
  30. SINGULAIR [Concomitant]
     Active Substance: MONTELUKAST SODIUM
  31. CLOBETASOL [Concomitant]
     Active Substance: CLOBETASOL
  32. PREDNISOLONE VALERATE ACETATE [Concomitant]
     Active Substance: PREDNISOLONE VALERATE ACETATE
  33. ALCLOMETASONE DIPROPIONATE [Concomitant]
     Active Substance: ALCLOMETASONE DIPROPIONATE
  34. AZUNOL [Concomitant]
  35. DELGOCITINIB [Concomitant]
     Active Substance: DELGOCITINIB
  36. GLYCOSAMINOGLYCANS [Concomitant]
     Active Substance: GLYCOSAMINOGLYCANS
  37. DEXTROMETHORPHAN HYDROBROMIDE [Concomitant]
     Active Substance: DEXTROMETHORPHAN HYDROBROMIDE
     Indication: Human rhinovirus test positive
  38. DEXTROMETHORPHAN HYDROBROMIDE [Concomitant]
     Active Substance: DEXTROMETHORPHAN HYDROBROMIDE
     Indication: Enterovirus infection
  39. CEFEPIME HYDROCHLORIDE [Concomitant]
     Active Substance: CEFEPIME HYDROCHLORIDE
     Indication: Human rhinovirus test positive
  40. CEFEPIME HYDROCHLORIDE [Concomitant]
     Active Substance: CEFEPIME HYDROCHLORIDE
     Indication: Enterovirus infection
  41. CALONAL [Concomitant]
     Active Substance: ACETAMINOPHEN
     Indication: Human rhinovirus test positive
  42. CALONAL [Concomitant]
     Active Substance: ACETAMINOPHEN
     Indication: Enterovirus infection

REACTIONS (6)
  - Adult T-cell lymphoma/leukaemia recurrent [Not Recovered/Not Resolved]
  - Febrile neutropenia [Recovered/Resolved]
  - Pneumonia bacterial [Recovered/Resolved]
  - Pyrexia [Recovered/Resolved]
  - Human rhinovirus test positive [Recovered/Resolved]
  - Enterovirus infection [Recovered/Resolved]

NARRATIVE: CASE EVENT DATE: 20250106
